FAERS Safety Report 6914431-9 (Version None)
Quarter: 2010Q3

REPORT INFORMATION
  Report Type: 
  Country: None (occurrence: None)
  Receive Date: 20100809
  Receipt Date: 20100728
  Transmission Date: 20110219
  Serious: Yes (Other)
  Sender: FDA-Public Use
  Company Number: DE-PFIZER INC-2010094627

PATIENT
  Sex: Female

DRUGS (1)
  1. DETRUSITOL [Suspect]
     Dosage: 2 MG, 2X/DAY
     Dates: start: 20100501

REACTIONS (3)
  - DRUG INTERACTION [None]
  - DYSURIA [None]
  - URINARY RETENTION [None]
